FAERS Safety Report 10691147 (Version 1)
Quarter: 2015Q1

REPORT INFORMATION
  Report Type: Spontaneous
  Country: JP (occurrence: None)
  Receive Date: 20150102
  Receipt Date: 20150102
  Transmission Date: 20150720
  Serious: Yes (Hospitalization, Other)
  Sender: FDA-Public Use
  Company Number: JP-ZYDUS-006138

PATIENT
  Age: 15 Year
  Sex: Male

DRUGS (2)
  1. CEFOTAXMINE [Concomitant]
  2. SODIUM VALPROATE (SODIUM VALPROATE) [Suspect]
     Active Substance: VALPROATE SODIUM
     Indication: SEIZURE

REACTIONS (9)
  - Red blood cell sedimentation rate increased [None]
  - Condition aggravated [None]
  - Bronchopneumonia [None]
  - Hypocarnitinaemia [None]
  - Renal tubular disorder [None]
  - Pyrexia [None]
  - Fanconi syndrome [None]
  - Weight decreased [None]
  - Seizure [None]
